FAERS Safety Report 4502019-9 (Version None)
Quarter: 2004Q4

REPORT INFORMATION
  Report Type: 
  Country: None (occurrence: None)
  Receive Date: 20041109
  Receipt Date: 20041025
  Transmission Date: 20050328
  Serious: Yes (Death)
  Sender: FDA-Public Use
  Company Number: 2004AL001120

PATIENT
  Age: 17 Year
  Sex: Female

DRUGS (2)
  1. KADIAN [Suspect]
  2. CANNABIS [Concomitant]

REACTIONS (2)
  - DRUG ABUSER [None]
  - FOREIGN BODY ASPIRATION [None]
